FAERS Safety Report 9779819 (Version 1)
Quarter: 2013Q4

REPORT INFORMATION
  Report Type: Spontaneous
  Country: HR (occurrence: HR)
  Receive Date: 20131223
  Receipt Date: 20131223
  Transmission Date: 20140711
  Serious: Yes (Other)
  Sender: FDA-Public Use
  Company Number: HR-VIIV HEALTHCARE LIMITED-B0954926A

PATIENT
  Age: 48 Year
  Sex: Female

DRUGS (5)
  1. LAMIVUDINE-HIV [Suspect]
     Indication: HIV INFECTION
     Route: 065
  2. ZIDOVUDINE [Suspect]
     Indication: HIV INFECTION
     Route: 065
  3. STAVUDINE [Suspect]
     Indication: HIV INFECTION
     Route: 065
  4. EFAVIRENZ [Suspect]
     Indication: HIV INFECTION
     Route: 065
  5. LOPINAVIR [Suspect]
     Indication: HIV INFECTION
     Route: 065

REACTIONS (20)
  - Basedow^s disease [Recovered/Resolved]
  - Immune reconstitution inflammatory syndrome [Recovered/Resolved]
  - Palpitations [Unknown]
  - Weight decreased [Unknown]
  - Tremor [Unknown]
  - Blood thyroid stimulating hormone decreased [Unknown]
  - Tri-iodothyronine increased [Unknown]
  - Thyroxine free increased [Unknown]
  - Pyrexia [Unknown]
  - Cough [Unknown]
  - Diarrhoea [Unknown]
  - Seborrhoeic dermatitis [Unknown]
  - Oropharyngeal candidiasis [Unknown]
  - CD4 lymphocytes decreased [Unknown]
  - Blood HIV RNA increased [Unknown]
  - Hyperthyroidism [Unknown]
  - Exophthalmos [Unknown]
  - Cardiac murmur [Unknown]
  - Tachycardia [Unknown]
  - Goitre [Unknown]
